FAERS Safety Report 21897944 (Version 1)
Quarter: 2023Q1

REPORT INFORMATION
  Report Type: Other
  Country: RU (occurrence: None)
  Receive Date: 20230123
  Receipt Date: 20230123
  Transmission Date: 20230418
  Serious: Yes (Death, Hospitalization)
  Sender: FDA-Public Use
  Company Number: RU-ROCHE-3269090

PATIENT
  Age: 83 Year
  Sex: Female
  Weight: 90 kg

DRUGS (19)
  1. TOCILIZUMAB [Suspect]
     Active Substance: TOCILIZUMAB
     Indication: COVID-19
     Route: 041
  2. OLOKIZUMAB [Suspect]
     Active Substance: OLOKIZUMAB
     Indication: COVID-19
     Route: 042
  3. CEFTRIAXONE [Concomitant]
     Active Substance: CEFTRIAXONE
     Indication: Pyrexia
     Route: 041
  4. FAVIPIRAVIR [Concomitant]
     Active Substance: FAVIPIRAVIR
     Route: 058
  5. APIXABAN [Concomitant]
     Active Substance: APIXABAN
  6. OXYGEN [Concomitant]
     Active Substance: OXYGEN
  7. ASPIRIN [Concomitant]
     Active Substance: ASPIRIN
  8. PREDNISOLONE [Concomitant]
     Active Substance: PREDNISOLONE
     Dates: start: 20211110
  9. DEXAMETHASONE [Concomitant]
     Active Substance: DEXAMETHASONE
     Route: 041
     Dates: start: 20211110, end: 20211112
  10. DEXAMETHASONE [Concomitant]
     Active Substance: DEXAMETHASONE
     Route: 041
     Dates: start: 20211113, end: 20211117
  11. SPIRONOLACTONE [Concomitant]
     Active Substance: SPIRONOLACTONE
  12. AMBROXOL HYDROCHLORIDE [Concomitant]
     Active Substance: AMBROXOL HYDROCHLORIDE
  13. OMEPRAZOLE [Concomitant]
     Active Substance: OMEPRAZOLE
  14. BISOPROLOL FUMARATE [Concomitant]
     Active Substance: BISOPROLOL FUMARATE
  15. ATORVASTATIN [Concomitant]
     Active Substance: ATORVASTATIN
  16. NIFEDIPINE [Concomitant]
     Active Substance: NIFEDIPINE
  17. PROMAZINE [Concomitant]
     Active Substance: PROMAZINE
     Dosage: HALF TABLET BEFORE BED
  18. GLUCOSE;SALT [Concomitant]
     Dosage: 300-500 ML
  19. SODIUM CHLORIDE [Concomitant]
     Active Substance: SODIUM CHLORIDE
     Route: 041

REACTIONS (2)
  - Diverticular perforation [Fatal]
  - Off label use [Unknown]
